FAERS Safety Report 5092416-8 (Version None)
Quarter: 2006Q3

REPORT INFORMATION
  Report Type: 
  Country: None (occurrence: None)
  Receive Date: 20060825
  Receipt Date: 20060816
  Transmission Date: 20061208
  Serious: Yes (Other)
  Sender: FDA-Public Use
  Company Number: 2006100322

PATIENT
  Age: 75 Year
  Sex: Female
  Weight: 72.5755 kg

DRUGS (7)
  1. LIPITOR [Suspect]
     Indication: BLOOD CHOLESTEROL INCREASED
     Dosage: 10 MG (10 MG, 1 IN 1 D)
  2. LYRICA [Suspect]
     Indication: TRIGEMINAL NEURALGIA
     Dosage: 100 MG (50 MG, BID)
     Dates: start: 20060815
  3. TRILEPTAL [Suspect]
     Indication: TRIGEMINAL NEURALGIA
     Dates: start: 20060101, end: 20060801
  4. PLAVIX [Concomitant]
  5. LEVOXYL [Concomitant]
  6. ACETAMINOPHEN [Concomitant]
  7. KLONOPIN [Concomitant]

REACTIONS (20)
  - ALOPECIA [None]
  - ARTHRITIS [None]
  - BODY HEIGHT DECREASED [None]
  - BRUXISM [None]
  - CONDITION AGGRAVATED [None]
  - DIZZINESS [None]
  - FEELING DRUNK [None]
  - GASTRIC DISORDER [None]
  - HYPOAESTHESIA [None]
  - MALAISE [None]
  - MIGRAINE [None]
  - MYALGIA [None]
  - POLYMYALGIA RHEUMATICA [None]
  - PSORIATIC ARTHROPATHY [None]
  - RED BLOOD CELL SEDIMENTATION RATE INCREASED [None]
  - SOMNOLENCE [None]
  - TRANSIENT ISCHAEMIC ATTACK [None]
  - TREATMENT NONCOMPLIANCE [None]
  - TRIGEMINAL NEURALGIA [None]
  - UNEVALUABLE EVENT [None]
